FAERS Safety Report 8504760-X (Version None)
Quarter: 2012Q3

REPORT INFORMATION
  Report Type: 
  Country: None (occurrence: None)
  Receive Date: 20120712
  Receipt Date: 20120705
  Transmission Date: 20120928
  Serious: Yes (Hospitalization)
  Sender: FDA-Public Use
  Company Number: SE-BRISTOL-MYERS SQUIBB COMPANY-16521122

PATIENT
  Age: 79 Year
  Sex: Male

DRUGS (8)
  1. ESOMEPRAZOLE [Concomitant]
     Dosage: ARROW GASTRO-RESISTANT TABLET
  2. LANTUS [Concomitant]
  3. METFORMIN HCL [Suspect]
     Indication: DIABETES MELLITUS
     Route: 048
     Dates: end: 20111218
  4. ASPIRIN [Concomitant]
     Dosage: TAB
  5. IRBESARTAN [Suspect]
     Route: 048
     Dates: end: 20111218
  6. FUROSEMIDE [Concomitant]
     Dosage: TAB
  7. GLYTRIN [Concomitant]
     Dosage: SPRAY 0.4MG/DOSE
     Route: 060
  8. WARFARIN SODIUM [Concomitant]
     Dosage: TAB

REACTIONS (2)
  - LACTIC ACIDOSIS [None]
  - RENAL FAILURE ACUTE [None]
